FAERS Safety Report 9305442 (Version 3)
Quarter: 2013Q3

REPORT INFORMATION
  Report Type: Spontaneous
  Country: US (occurrence: US)
  Receive Date: 20130523
  Receipt Date: 20130708
  Transmission Date: 20140515
  Serious: Yes (Hospitalization)
  Sender: FDA-Public Use
  Company Number: US-UCBSA-086091

PATIENT
  Age: 26 Year
  Sex: Male
  Weight: 88.4 kg

DRUGS (7)
  1. KEPPRA XR [Suspect]
     Indication: CONVULSION
     Dosage: STRENGTH: 500MG 6/DAY, 3000 MG DAILY
     Route: 048
     Dates: start: 2011
  2. DIAZEPAM [Concomitant]
     Indication: ANXIETY
     Dates: start: 2013
  3. DIAZEPAM [Concomitant]
     Indication: CONVULSION
     Dates: start: 2013
  4. DIAZEPAM [Concomitant]
     Indication: ANXIETY
     Route: 048
  5. DIAZEPAM [Concomitant]
     Indication: CONVULSION
     Route: 048
  6. TRAMADOL [Concomitant]
     Route: 048
  7. HYDROCODONE/ACETAMINOPHEN [Concomitant]
     Dosage: 5/500
     Route: 048

REACTIONS (2)
  - Cerebral haemorrhage [Unknown]
  - Inappropriate schedule of drug administration [Unknown]
